FAERS Safety Report 13693166 (Version 3)
Quarter: 2017Q3

REPORT INFORMATION
  Report Type: Report from Study
  Country: ES (occurrence: ES)
  Receive Date: 20170627
  Receipt Date: 20170731
  Transmission Date: 20171127
  Serious: Yes (Hospitalization, Other)
  Sender: FDA-Public Use
  Company Number: ES-BAYER-2017-091106

PATIENT
  Age: 76 Year
  Sex: Male

DRUGS (2)
  1. ENALAPRIL [Concomitant]
     Active Substance: ENALAPRIL
     Dosage: UNK
  2. REGORAFENIB [Suspect]
     Active Substance: REGORAFENIB
     Indication: COLON CANCER
     Dosage: 160 MG, QD
     Route: 048
     Dates: start: 20170327, end: 20170409

REACTIONS (19)
  - Blister [Recovered/Resolved]
  - Oropharyngeal candidiasis [None]
  - Transaminases increased [None]
  - Dysphagia [None]
  - Pruritus generalised [Recovered/Resolved]
  - Upper gastrointestinal haemorrhage [None]
  - Oesophagitis [None]
  - Face oedema [Recovered/Resolved]
  - Drug eruption [Recovering/Resolving]
  - Mucosal inflammation [None]
  - Gastrooesophageal reflux disease [None]
  - Palmar-plantar erythrodysaesthesia syndrome [None]
  - Toxic skin eruption [Recovered/Resolved]
  - Gastric ulcer [None]
  - Melaena [Recovered/Resolved]
  - Erosive duodenitis [None]
  - Anaemia [None]
  - Rash macular [Recovered/Resolved]
  - Diarrhoea [None]

NARRATIVE: CASE EVENT DATE: 20170407
